FAERS Safety Report 26201134 (Version 1)
Quarter: 2025Q4

REPORT INFORMATION
  Report Type: Report from Study
  Country: US (occurrence: US)
  Receive Date: 20251226
  Receipt Date: 20251226
  Transmission Date: 20260118
  Serious: Yes (Other)
  Sender: ROCHE
  Company Number: US-ROCHE-10000468925

PATIENT
  Age: 69 Year
  Sex: Female

DRUGS (2)
  1. XOLAIR PFS [Suspect]
     Active Substance: OMALIZUMAB
     Indication: Asthma
     Dosage: INJECT THE CONTENTS OF 1 DEVICE(S) UNDER THE SKIN EVERY 2 WEEK(S) (TOTAL: 225MG EVERY 2 WEEK(S))
     Route: 058
  2. XOLAIR PFS [Suspect]
     Active Substance: OMALIZUMAB
     Dosage: INJECT THE CONTENTS OF 1 DEVICE(S) UNDER THE SKIN EVERY 2 WEEK(S) (TOTAL: 225MG EVERY 2 WEEK(S))
     Route: 058

REACTIONS (1)
  - Cardiac failure congestive [Unknown]
